FAERS Safety Report 8917238 (Version 2)
Quarter: 2012Q4

REPORT INFORMATION
  Report Type: 
  Country: JP (occurrence: JP)
  Receive Date: 20121119
  Receipt Date: 20121227
  Transmission Date: 20130627
  Serious: Yes (Other)
  Sender: FDA-Public Use
  Company Number: JP-MYLANLABS-2012S1023360

PATIENT
  Age: 61 Year
  Sex: Female
  Weight: 45 kg

DRUGS (3)
  1. VANCOMYCIN [Suspect]
     Indication: MENINGITIS BACTERIAL
     Route: 041
     Dates: start: 20111203, end: 20111203
  2. VANCOMYCIN [Suspect]
     Indication: MENINGITIS BACTERIAL
     Route: 041
     Dates: start: 20111203, end: 20111207
  3. CEFTRIAXONE SANDOZ [Concomitant]
     Indication: MENINGITIS BACTERIAL
     Route: 041
     Dates: start: 20111203, end: 20111207

REACTIONS (1)
  - Convulsion [Not Recovered/Not Resolved]
